FAERS Safety Report 5242514-0 (Version None)
Quarter: 2007Q1

REPORT INFORMATION
  Report Type: 
  Country: None (occurrence: None)
  Receive Date: 20070221
  Receipt Date: 20070112
  Transmission Date: 20070707
  Serious: Yes (Other)
  Sender: FDA-Public Use
  Company Number: US-BAYER-200616356BWH

PATIENT
  Age: 64 Year
  Sex: Male

DRUGS (1)
  1. NEXAVAR [Suspect]
     Indication: RENAL CELL CARCINOMA STAGE UNSPECIFIED
     Dosage: AS USED: 400/200 MG  UNIT DOSE: 200 MG
     Route: 048
     Dates: start: 20060215, end: 20061101

REACTIONS (2)
  - POST PROCEDURAL INFECTION [None]
  - SKIN CANCER [None]
